FAERS Safety Report 5680882-6 (Version None)
Quarter: 2008Q1

REPORT INFORMATION
  Report Type: 
  Country: None (occurrence: None)
  Receive Date: 20080326
  Receipt Date: 20080314
  Transmission Date: 20080703
  Serious: Yes (Other)
  Sender: FDA-Public Use
  Company Number: DE-PFIZER INC-2008024309

PATIENT
  Sex: Female

DRUGS (1)
  1. CHAMPIX [Suspect]
     Indication: TOBACCO WITHDRAWAL SYMPTOMS
     Route: 048
     Dates: start: 20071128, end: 20080207

REACTIONS (5)
  - ABNORMAL DREAMS [None]
  - CONTUSION [None]
  - EXCORIATION [None]
  - FALL [None]
  - SOMNAMBULISM [None]
